FAERS Safety Report 11966729 (Version 1)
Quarter: 2016Q1

REPORT INFORMATION
  Report Type: Spontaneous
  Country: US (occurrence: US)
  Receive Date: 20160127
  Receipt Date: 20160127
  Transmission Date: 20160526
  Serious: No
  Sender: FDA-Public Use
  Company Number: US-BAYER-2016-014332

PATIENT
  Age: 75 Year
  Sex: Female
  Weight: 56.24 kg

DRUGS (1)
  1. CLARITIN-D 12 HOUR [Suspect]
     Active Substance: LORATADINE\PSEUDOEPHEDRINE SULFATE
     Indication: NASAL CONGESTION
     Dosage: 1 DF, BID
     Route: 048
     Dates: start: 2001

REACTIONS (1)
  - Poor quality sleep [Recovered/Resolved]

NARRATIVE: CASE EVENT DATE: 20160121
